FAERS Safety Report 10946801 (Version 2)
Quarter: 2015Q2

REPORT INFORMATION
  Report Type: Spontaneous
  Country: US (occurrence: US)
  Receive Date: 20150323
  Receipt Date: 20150608
  Transmission Date: 20150821
  Serious: No
  Sender: FDA-Public Use
  Company Number: US-PFIZER INC-2015099528

PATIENT

DRUGS (1)
  1. CHANTIX [Suspect]
     Active Substance: VARENICLINE TARTRATE
     Dosage: UNK

REACTIONS (5)
  - Abnormal dreams [Unknown]
  - Dysgeusia [Unknown]
  - Therapeutic response unexpected [Unknown]
  - Cough decreased [Unknown]
  - Dyspnoea [Unknown]
